FAERS Safety Report 10994347 (Version 1)
Quarter: 2015Q2

REPORT INFORMATION
  Report Type: Spontaneous
  Country: KR (occurrence: KR)
  Receive Date: 20150407
  Receipt Date: 20150407
  Transmission Date: 20150821
  Serious: Yes (Hospitalization)
  Sender: FDA-Public Use
  Company Number: KR-BAYER-2015-065464

PATIENT
  Age: 66 Year
  Sex: Female

DRUGS (5)
  1. DICLOFENAC [Suspect]
     Active Substance: DICLOFENAC
     Indication: FLANK PAIN
     Dosage: 4 DOSES NOS
     Route: 030
  2. CIPROFLOXACIN BETAIN [Suspect]
     Active Substance: CIPROFLOXACIN
     Indication: PYELONEPHRITIS
     Dosage: UNK
     Route: 042
  3. CIPROFLOXACIN BETAIN [Suspect]
     Active Substance: CIPROFLOXACIN
     Indication: ESCHERICHIA INFECTION
  4. DICLOFENAC [Suspect]
     Active Substance: DICLOFENAC
     Indication: CHILLS
  5. INSULIN [Concomitant]
     Active Substance: INSULIN NOS
     Dosage: UNK
     Route: 058

REACTIONS (2)
  - Pyomyositis [None]
  - Drug ineffective [None]
